FAERS Safety Report 21159384 (Version 3)
Quarter: 2022Q3

REPORT INFORMATION
  Report Type: Spontaneous
  Country: DK (occurrence: IT)
  Receive Date: 20220802
  Receipt Date: 20220808
  Transmission Date: 20221027
  Serious: Yes (Other)
  Sender: FDA-Public Use
  Company Number: DK-TEVA-2022-DK-2059282

PATIENT
  Sex: Female

DRUGS (2)
  1. PROMETHAZINE HYDROCHLORIDE [Suspect]
     Active Substance: PROMETHAZINE HYDROCHLORIDE
     Indication: Motion sickness
     Route: 065
  2. PROMETHAZINE HYDROCHLORIDE [Suspect]
     Active Substance: PROMETHAZINE HYDROCHLORIDE
     Indication: Insomnia

REACTIONS (5)
  - Visual impairment [Recovering/Resolving]
  - Memory impairment [Not Recovered/Not Resolved]
  - Dizziness [Recovering/Resolving]
  - Confusional state [Recovering/Resolving]
  - Tinnitus [Recovering/Resolving]

NARRATIVE: CASE EVENT DATE: 20220720
